FAERS Safety Report 20602953 (Version 6)
Quarter: 2024Q4

REPORT INFORMATION
  Report Type: Spontaneous
  Country: JP (occurrence: JP)
  Receive Date: 20220316
  Receipt Date: 20241121
  Transmission Date: 20250114
  Serious: Yes (Death, Other)
  Sender: UNITED THERAPEUTICS
  Company Number: JP-UNITED THERAPEUTICS-UNT-2022-001146

PATIENT
  Age: 6 Year
  Sex: Female
  Weight: 16.9 kg

DRUGS (24)
  1. UNITUXIN [Suspect]
     Active Substance: DINUTUXIMAB
     Indication: Neuroblastoma recurrent
     Dosage: 17.5 MG/M2, CYCLICAL (CYCLE 1)
     Route: 041
     Dates: start: 20211122, end: 20211125
  2. UNITUXIN [Suspect]
     Active Substance: DINUTUXIMAB
     Dosage: 17.5 MG/M2, CYCLICAL (CYCLE 2)
     Route: 041
     Dates: start: 20211221, end: 20211224
  3. UNITUXIN [Suspect]
     Active Substance: DINUTUXIMAB
     Dosage: 17.5 MG/M2, CYCLICAL (CYCLE 3)
     Route: 041
     Dates: start: 20220117, end: 20220120
  4. UNITUXIN [Suspect]
     Active Substance: DINUTUXIMAB
     Dosage: 17.5 MG/M2, CYCLICAL (CYCLE 4)
     Route: 041
     Dates: start: 20220214, end: 20220217
  5. UNITUXIN [Suspect]
     Active Substance: DINUTUXIMAB
     Dosage: UNK, CYCLICAL (CYCLE 5)
     Route: 041
  6. TECELEUKIN [Suspect]
     Active Substance: TECELEUKIN
     Indication: Neuroblastoma recurrent
     Dosage: 7,000,000 IU/M2, CYCLICAL
     Route: 041
  7. TECELEUKIN [Suspect]
     Active Substance: TECELEUKIN
     Dosage: 7,000,000 IU/M2, CYCLICAL
     Route: 041
  8. TECELEUKIN [Suspect]
     Active Substance: TECELEUKIN
     Dosage: 750,000 UNITS/M2, CYCLICAL
     Route: 041
     Dates: start: 20211214, end: 20211217
  9. TECELEUKIN [Suspect]
     Active Substance: TECELEUKIN
     Dosage: 1,000,000 UNITS/M2, CYCLICAL
     Route: 041
     Dates: start: 20211221, end: 20211224
  10. TECELEUKIN [Suspect]
     Active Substance: TECELEUKIN
     Dosage: 750,000 UNITS/M2, CYCLICAL
     Route: 041
     Dates: start: 20220207, end: 20220210
  11. TECELEUKIN [Suspect]
     Active Substance: TECELEUKIN
     Dosage: 1,000,000 UNITS/M2, CYCLICAL
     Route: 041
     Dates: start: 20220214, end: 20220217
  12. FILGRASTIM [Concomitant]
     Active Substance: FILGRASTIM
     Indication: Neuroblastoma recurrent
     Dosage: 5 ?G/KG, QD
     Dates: start: 20211119, end: 20211202
  13. FILGRASTIM [Concomitant]
     Active Substance: FILGRASTIM
     Dosage: 70 ?G/KG
  14. FILGRASTIM [Concomitant]
     Active Substance: FILGRASTIM
     Dosage: 5 ?G/KG, QD
     Dates: start: 20220114, end: 20220127
  15. FILGRASTIM [Concomitant]
     Active Substance: FILGRASTIM
     Dosage: 5 ?G/KG, QD
     Dates: start: 20220304, end: 20220307
  16. ACETAMINOPHEN [Concomitant]
     Active Substance: ACETAMINOPHEN
     Indication: Prophylaxis
     Dosage: UNK
     Dates: start: 20211122, end: 20211125
  17. ACETAMINOPHEN [Concomitant]
     Active Substance: ACETAMINOPHEN
     Dosage: UNK
     Dates: start: 20211221, end: 20211224
  18. ACETAMINOPHEN [Concomitant]
     Active Substance: ACETAMINOPHEN
     Dosage: UNK
     Dates: start: 20220117, end: 20220120
  19. ACETAMINOPHEN [Concomitant]
     Active Substance: ACETAMINOPHEN
     Dosage: UNK
     Dates: start: 20220214, end: 20220217
  20. MORPHINE [Concomitant]
     Active Substance: MORPHINE
     Indication: Prophylaxis
     Dosage: UNK
     Dates: start: 20211221, end: 20211224
  21. MORPHINE [Concomitant]
     Active Substance: MORPHINE
     Dosage: UNK
     Dates: start: 20220117, end: 20220120
  22. MORPHINE [Concomitant]
     Active Substance: MORPHINE
     Dosage: UNK
     Dates: start: 20220214, end: 20220217
  23. HYDROXYZINE [Concomitant]
     Active Substance: HYDROXYZINE HYDROCHLORIDE
     Indication: Prophylaxis
     Dosage: UNK
     Dates: start: 20220117, end: 20220120
  24. HYDROXYZINE [Concomitant]
     Active Substance: HYDROXYZINE HYDROCHLORIDE
     Dosage: UNK
     Dates: start: 20220214, end: 20220217

REACTIONS (10)
  - Neuroblastoma recurrent [Fatal]
  - Capillary permeability increased [Unknown]
  - Oedema [Recovered/Resolved]
  - Pyrexia [Recovered/Resolved]
  - Blood albumin decreased [Recovered/Resolved]
  - Hypotension [Recovered/Resolved]
  - Blood albumin decreased [Unknown]
  - Oedema [Unknown]
  - Pyrexia [Recovered/Resolved]
  - Pyrexia [Recovered/Resolved]

NARRATIVE: CASE EVENT DATE: 20211101
